FAERS Safety Report 7558307-5 (Version None)
Quarter: 2011Q2

REPORT INFORMATION
  Report Type: 
  Country: None (occurrence: None)
  Receive Date: 20110620
  Receipt Date: 20110608
  Transmission Date: 20111010
  Serious: Yes (Hospitalization)
  Sender: FDA-Public Use
  Company Number: CH-ELI_LILLY_AND_COMPANY-CH201106000192

PATIENT
  Sex: Male
  Weight: 75 kg

DRUGS (9)
  1. METOPROLOL SUCCINATE [Concomitant]
     Dosage: 25 MG, QD
  2. EFFIENT [Suspect]
     Indication: ACUTE CORONARY SYNDROME
     Dosage: 60 MG, LOADING DOSE
     Dates: start: 20110509
  3. LERCANIDIPINE [Concomitant]
     Dosage: 20 MG, QD
  4. PANTOPRAZOLE [Concomitant]
     Dosage: 40 MG, QD
  5. EFFIENT [Suspect]
     Dosage: UNK, QD
  6. ASPIRIN [Concomitant]
     Dosage: UNK UNK, QD
  7. PARAGOL [Concomitant]
     Dosage: 20 ML, TID
  8. IRBESARTAN AND HYDROCHLOROTHIAZIDE [Concomitant]
     Dosage: 12.5 MG, QD
  9. CRESTOR [Concomitant]
     Dosage: 10 MG, QD

REACTIONS (3)
  - BLADDER OBSTRUCTION [None]
  - PROSTATIC HAEMORRHAGE [None]
  - PROSTATIC ADENOMA [None]
